FAERS Safety Report 12720509 (Version 5)
Quarter: 2016Q4

REPORT INFORMATION
  Report Type: Spontaneous
  Country: US (occurrence: US)
  Receive Date: 20160907
  Receipt Date: 20161020
  Transmission Date: 20170207
  Serious: Yes (Other)
  Sender: FDA-Public Use
  Company Number: US-GLAXOSMITHKLINE-US2016GSK128454

PATIENT
  Age: 82 Year
  Sex: Male
  Weight: 99.32 kg

DRUGS (36)
  1. GLUTATHIONE [Concomitant]
     Active Substance: GLUTATHIONE
  2. XALATAN [Concomitant]
     Active Substance: LATANOPROST
  3. SYNTHROID [Concomitant]
     Active Substance: LEVOTHYROXINE SODIUM
  4. ACCOLATE [Concomitant]
     Active Substance: ZAFIRLUKAST
  5. COREG [Suspect]
     Active Substance: CARVEDILOL
     Indication: PRODUCT USED FOR UNKNOWN INDICATION
     Dosage: UNK, U
  6. PERCOCET [Concomitant]
     Active Substance: ACETAMINOPHEN\OXYCODONE HYDROCHLORIDE
  7. MICARDIS [Concomitant]
     Active Substance: TELMISARTAN
  8. K-DUR [Concomitant]
     Active Substance: POTASSIUM CHLORIDE
  9. CRESTOR [Concomitant]
     Active Substance: ROSUVASTATIN CALCIUM
  10. XOLAIR [Suspect]
     Active Substance: OMALIZUMAB
     Indication: ASTHMA
     Dosage: 300 MG, CYC 2 WEEKS
  11. ATROVENT HFA [Concomitant]
     Active Substance: IPRATROPIUM BROMIDE
  12. ASTELIN [Concomitant]
     Active Substance: AZELASTINE HYDROCHLORIDE
  13. XOPENEX [Concomitant]
     Active Substance: LEVALBUTEROL HYDROCHLORIDE
  14. PROVIGIL [Concomitant]
     Active Substance: MODAFINIL
  15. EXELON [Concomitant]
     Active Substance: RIVASTIGMINE TARTRATE
  16. IMDUR [Suspect]
     Active Substance: ISOSORBIDE MONONITRATE
     Indication: PRODUCT USED FOR UNKNOWN INDICATION
     Dosage: UNK, U
  17. PULMICORT TURBUHALER [Concomitant]
     Active Substance: BUDESONIDE
  18. EPIPEN JR [Concomitant]
     Active Substance: EPINEPHRINE
  19. LEXAPRO [Concomitant]
     Active Substance: ESCITALOPRAM OXALATE
  20. ZETIA [Concomitant]
     Active Substance: EZETIMIBE
  21. LEVOTHROID [Concomitant]
     Active Substance: LEVOTHYROXINE SODIUM
  22. KLOR-CON [Concomitant]
     Active Substance: POTASSIUM CHLORIDE
  23. MEPOLIZUMAB [Concomitant]
     Active Substance: MEPOLIZUMAB
  24. NUCALA [Suspect]
     Active Substance: MEPOLIZUMAB
     Indication: ASTHMA
     Dosage: 100 MG, CYC MONTHLY
     Route: 058
     Dates: start: 20160823
  25. MUCOMYST [Concomitant]
     Active Substance: ACETYLCYSTEINE
  26. NITROSTAT [Concomitant]
     Active Substance: NITROGLYCERIN
  27. LEVAQUIN [Suspect]
     Active Substance: LEVOFLOXACIN
     Indication: PRODUCT USED FOR UNKNOWN INDICATION
     Dosage: UNK, U
  28. CARDIZEM CD [Concomitant]
     Active Substance: DILTIAZEM HYDROCHLORIDE
  29. LASIX [Concomitant]
     Active Substance: FUROSEMIDE
  30. PRILOSEC [Concomitant]
     Active Substance: OMEPRAZOLE MAGNESIUM
  31. CYANOCOBALAMIN. [Concomitant]
     Active Substance: CYANOCOBALAMIN
  32. CHOLECALCIFEROL [Concomitant]
     Active Substance: CHOLECALCIFEROL
  33. OXYGEN. [Concomitant]
     Active Substance: OXYGEN
  34. BROVANA [Concomitant]
     Active Substance: ARFORMOTEROL TARTRATE
  35. DEPO-TESTOSTERONE [Concomitant]
     Active Substance: TESTOSTERONE CYPIONATE
  36. XOPENEX HFA [Concomitant]
     Active Substance: LEVALBUTEROL TARTRATE

REACTIONS (14)
  - Fall [Unknown]
  - Laryngeal oedema [Recovered/Resolved]
  - Swelling face [Recovered/Resolved]
  - Dyspnoea [Not Recovered/Not Resolved]
  - Emergency care [Recovered/Resolved]
  - Drug hypersensitivity [Recovered/Resolved]
  - Urticaria [Recovered/Resolved]
  - Hypoaesthesia [Recovered/Resolved]
  - Balance disorder [Unknown]
  - Condition aggravated [Unknown]
  - Rash [Unknown]
  - Arrhythmia [Unknown]
  - Dizziness [Not Recovered/Not Resolved]
  - Mouth swelling [Recovered/Resolved]

NARRATIVE: CASE EVENT DATE: 20160824
